FAERS Safety Report 12782880 (Version 3)
Quarter: 2019Q1

REPORT INFORMATION
  Report Type: Spontaneous
  Country: US (occurrence: US)
  Receive Date: 20160927
  Receipt Date: 20190307
  Transmission Date: 20190417
  Serious: Yes (Hospitalization)
  Sender: FDA-Public Use
  Company Number: US-PFIZER INC-2016429672

PATIENT
  Age: 61 Year
  Sex: Female

DRUGS (1)
  1. AMLODIPINE BESILATE [Suspect]
     Active Substance: AMLODIPINE BESYLATE
     Indication: HYPERTENSION
     Dosage: 10 MG, DAILY
     Route: 048

REACTIONS (12)
  - Loss of personal independence in daily activities [Unknown]
  - Lethargy [Unknown]
  - Drug ineffective [Unknown]
  - Dizziness [Unknown]
  - Abdominal discomfort [Unknown]
  - Gait disturbance [Unknown]
  - Fall [Unknown]
  - Headache [Unknown]
  - Somnolence [Unknown]
  - Balance disorder [Unknown]
  - Nausea [Unknown]
  - Asthenia [Unknown]
